FAERS Safety Report 11896745 (Version 2)
Quarter: 2016Q1

REPORT INFORMATION
  Report Type: Spontaneous
  Country: US (occurrence: US)
  Receive Date: 20160107
  Receipt Date: 20160216
  Transmission Date: 20160526
  Serious: Yes (Hospitalization)
  Sender: FDA-Public Use
  Company Number: US-LUNDBECK-DKLU2008460

PATIENT
  Sex: Female

DRUGS (4)
  1. SABRIL [Suspect]
     Active Substance: VIGABATRIN
     Indication: INFANTILE SPASMS
     Route: 065
  2. SABRIL [Suspect]
     Active Substance: VIGABATRIN
     Indication: PARTIAL SEIZURES
     Route: 065
     Dates: start: 20150306
  3. SABRIL [Suspect]
     Active Substance: VIGABATRIN
     Indication: GENERALISED NON-CONVULSIVE EPILEPSY
     Route: 065
  4. SABRIL [Suspect]
     Active Substance: VIGABATRIN
     Indication: STATUS EPILEPTICUS
     Dosage: WEANING OFF
     Route: 065

REACTIONS (2)
  - Drug withdrawal convulsions [Unknown]
  - Drug dose omission [Unknown]
